FAERS Safety Report 4687878-1 (Version None)
Quarter: 2005Q2

REPORT INFORMATION
  Report Type: 
  Country: None (occurrence: None)
  Receive Date: 20050608
  Receipt Date: 20050608
  Transmission Date: 20051028
  Serious: Yes (Other)
  Sender: FDA-Public Use
  Company Number: None

PATIENT
  Sex: Female
  Weight: 38 kg

DRUGS (4)
  1. 5-FU [Suspect]
     Indication: PANCREATIC CARCINOMA
     Dosage: CONTINUOUS INFUSION VIA AN AMBULATORY INFUSION PUMP INTO A CENTRAL VENOUS CATHETER AT 175 MG/M2/DAY
     Dates: start: 20050502
  2. CISPLATIN [Suspect]
     Indication: PANCREATIC CARCINOMA
     Dosage: (30 MG/M2) GIVEN ON THE FIRST DAY ONLY EACH WEEK OF THIS CYCLE (DAYS 1, 8, 15, 22, 29, 36)
     Dates: start: 20050502
  3. INTERFERON [Suspect]
     Indication: PANCREATIC CARCINOMA
     Dosage: 3 MILLION IU GIVEN SUBCUTANEOUSLY ON DAYS 1, 3, 5, OF EACH WEEK FOR 5.5 WEEKS
     Route: 058
     Dates: start: 20050502
  4. RADIATION [Suspect]
     Indication: PANCREATIC CARCINOMA
     Dosage: SEE IMAGE
     Dates: start: 20050502

REACTIONS (2)
  - ADHESION [None]
  - SMALL INTESTINAL OBSTRUCTION [None]
